FAERS Safety Report 12847259 (Version 1)
Quarter: 2016Q4

REPORT INFORMATION
  Report Type: Spontaneous
  Country: US (occurrence: US)
  Receive Date: 20161014
  Receipt Date: 20161014
  Transmission Date: 20170207
  Serious: No
  Sender: FDA-Public Use
  Company Number: US-GLAXOSMITHKLINE-US2016148898

PATIENT
  Sex: Female

DRUGS (1)
  1. ALLI [Suspect]
     Active Substance: ORLISTAT
     Indication: IRRITABLE BOWEL SYNDROME
     Dosage: UNK (6 PILLS A DAY)

REACTIONS (4)
  - Therapeutic response unexpected [Unknown]
  - Overdose [Unknown]
  - Drug administration error [Unknown]
  - Off label use [Unknown]
